FAERS Safety Report 10842502 (Version 1)
Quarter: 2015Q1

REPORT INFORMATION
  Report Type: Report from Study
  Country: US (occurrence: US)
  Receive Date: 20150220
  Receipt Date: 20150220
  Transmission Date: 20150721
  Serious: No
  Sender: FDA-Public Use
  Company Number: US-ABBVIE-14P-163-1279888-00

PATIENT
  Age: 58 Year
  Sex: Female

DRUGS (1)
  1. HUMIRA [Suspect]
     Active Substance: ADALIMUMAB
     Indication: ANKYLOSING SPONDYLITIS
     Route: 058
     Dates: start: 20140711

REACTIONS (7)
  - Lymphadenopathy [Unknown]
  - Psoriasis [Unknown]
  - Pyrexia [Unknown]
  - Confusional state [Unknown]
  - Fluid retention [Unknown]
  - Dizziness [Unknown]
  - Rash [Unknown]
